FAERS Safety Report 5156817-1 (Version None)
Quarter: 2006Q4

REPORT INFORMATION
  Report Type: 
  Country: None (occurrence: None)
  Receive Date: 20061115
  Receipt Date: 20061101
  Transmission Date: 20070319
  Serious: Yes (Life-Threatening, Other)
  Sender: FDA-Public Use
  Company Number: 02100-JPN-06-0477

PATIENT
  Age: 82 Year
  Sex: Female

DRUGS (6)
  1. CILOSTAZOL [Suspect]
     Indication: ARTERIOSCLEROSIS OBLITERANS
     Dosage: 100 MG ORAL
     Route: 048
     Dates: start: 20060811, end: 20060922
  2. CELIPROLOL HYDROCHLORIDE [Suspect]
     Indication: HYPERTENSION
     Dosage: 100 MG ORAL
     Route: 048
     Dates: start: 20060825, end: 20060922
  3. OXAZOLAM [Concomitant]
  4. CILNIDIPINE [Concomitant]
  5. TELMISARTAN [Concomitant]
  6. ASPIRIN [Concomitant]

REACTIONS (4)
  - AGRANULOCYTOSIS [None]
  - HYPERTHERMIA [None]
  - TONSILLITIS [None]
  - WHITE BLOOD CELL COUNT DECREASED [None]
